FAERS Safety Report 9899984 (Version 1)
Quarter: 2014Q1

REPORT INFORMATION
  Report Type: Spontaneous
  Country: US (occurrence: US)
  Receive Date: 20140214
  Receipt Date: 20140214
  Transmission Date: 20141002
  Serious: No
  Sender: FDA-Public Use
  Company Number: US-VIVUS-2013V1000890

PATIENT
  Age: 61 Year
  Sex: Female
  Weight: 74 kg

DRUGS (8)
  1. QSYMIA 3.75MG/23MG [Suspect]
     Indication: WEIGHT DECREASED
     Route: 048
     Dates: start: 201310, end: 201310
  2. QSYMIA 7.5MG/46MG [Suspect]
     Indication: WEIGHT DECREASED
     Route: 048
     Dates: start: 201311, end: 201311
  3. QSYMIA 11.25MG/69MG [Suspect]
     Indication: WEIGHT DECREASED
     Route: 048
     Dates: start: 201312
  4. SINGULAIR [Concomitant]
     Indication: ASTHMA
     Route: 048
  5. ADVAIR [Concomitant]
     Indication: ASTHMA
     Dosage: 2 PUFFS
  6. LOSARTAN/HCTZ [Concomitant]
     Indication: HYPERTENSION
     Dosage: 100MG/12.5MG
     Route: 048
  7. AMLODIPINE [Concomitant]
     Indication: HYPERTENSION
     Route: 048
  8. ALBUTEROL [Concomitant]
     Indication: ASTHMA
     Dosage: 1-2 PUFFS

REACTIONS (1)
  - Nasopharyngitis [Not Recovered/Not Resolved]
